FAERS Safety Report 15132987 (Version 1)
Quarter: 2018Q3

REPORT INFORMATION
  Report Type: Spontaneous
  Country: FR (occurrence: FR)
  Receive Date: 20180712
  Receipt Date: 20180712
  Transmission Date: 20181010
  Serious: Yes (Death, Life-Threatening, Hospitalization)
  Sender: FDA-Public Use
  Company Number: FR-TEVA-2018-FR-923519

PATIENT
  Age: 59 Year
  Sex: Male
  Weight: 83 kg

DRUGS (9)
  1. IXPRIM 37,5 MG/325 MG, COMPRIM? PELLICUL? [Concomitant]
     Route: 065
  2. MACROGOL (DISTEARATE DE) [Concomitant]
     Active Substance: POLYETHYLENE GLYCOLS
     Route: 065
  3. AMLODIPINE [Suspect]
     Active Substance: AMLODIPINE BESYLATE
     Indication: SUICIDE ATTEMPT
     Route: 048
     Dates: start: 20180405, end: 20180405
  4. ESOMEPRAZOLE [Concomitant]
     Active Substance: ESOMEPRAZOLE
     Route: 065
  5. ALLOPURINOL. [Suspect]
     Active Substance: ALLOPURINOL
     Indication: SUICIDE ATTEMPT
     Route: 048
     Dates: start: 20180405, end: 20180405
  6. PREGABALIN. [Suspect]
     Active Substance: PREGABALIN
     Indication: SUICIDE ATTEMPT
     Route: 048
     Dates: start: 20180405, end: 20180405
  7. OXAZEPAM. [Concomitant]
     Active Substance: OXAZEPAM
     Route: 065
  8. SKENAN [Suspect]
     Active Substance: MORPHINE SULFATE
     Indication: SUICIDE ATTEMPT
     Route: 048
     Dates: start: 20180405, end: 20180405
  9. TAMSULOSINE [Concomitant]
     Active Substance: TAMSULOSIN HYDROCHLORIDE
     Route: 065

REACTIONS (7)
  - Multiple organ dysfunction syndrome [Fatal]
  - Miosis [Fatal]
  - Pneumonia [Fatal]
  - Hypotension [Fatal]
  - Bradypnoea [Fatal]
  - Cardio-respiratory arrest [Fatal]
  - Somnolence [Fatal]

NARRATIVE: CASE EVENT DATE: 20180405
